FAERS Safety Report 7387362-0 (Version None)
Quarter: 2011Q1

REPORT INFORMATION
  Report Type: 
  Country: None (occurrence: None)
  Receive Date: 20110331
  Receipt Date: 20110317
  Transmission Date: 20110831
  Serious: Yes (Hospitalization, Other)
  Sender: FDA-Public Use
  Company Number: PHHO2010SE19291

PATIENT
  Sex: Male
  Weight: 107.1 kg

DRUGS (6)
  1. BLINDED ERL 080A [Suspect]
     Indication: RENAL TRANSPLANT
     Dosage: CODE NOT BROKEN
     Route: 048
     Dates: start: 20100924, end: 20101108
  2. PREDNISOLONE [Suspect]
     Indication: RENAL TRANSPLANT
     Dosage: 5 MG, QD
     Route: 048
     Dates: start: 20100926
  3. BLINDED AEB071 [Suspect]
     Indication: RENAL TRANSPLANT
     Dosage: CODE NOT BROKEN
     Route: 048
     Dates: start: 20100924, end: 20101108
  4. PROGRAF [Suspect]
     Indication: RENAL TRANSPLANT
     Dosage: 1.5 MG, BID
     Route: 048
     Dates: start: 20100921
  5. BLINDED NO TREATMENT RECEIVED [Suspect]
     Indication: RENAL TRANSPLANT
     Dosage: CODE NOT BROKEN
     Route: 048
     Dates: start: 20100924, end: 20101108
  6. SIMULECT [Suspect]
     Indication: RENAL TRANSPLANT
     Route: 042

REACTIONS (2)
  - HAEMATURIA [None]
  - BLOOD CREATININE INCREASED [None]
